FAERS Safety Report 9481379 (Version 4)
Quarter: 2013Q4

REPORT INFORMATION
  Report Type: Spontaneous
  Country: US (occurrence: US)
  Receive Date: 20130828
  Receipt Date: 20131219
  Transmission Date: 20140711
  Serious: No
  Sender: FDA-Public Use
  Company Number: US-009507513-1308USA013239

PATIENT
  Sex: Male

DRUGS (3)
  1. PEGINTRON [Suspect]
     Indication: HEPATITIS C
     Dosage: UNK
     Dates: start: 20130728
  2. REBETOL [Suspect]
     Indication: HEPATITIS C
     Dosage: UNK
     Route: 048
     Dates: start: 20130728
  3. TELAPREVIR [Suspect]
     Indication: HEPATITIS C
     Dosage: UNK
     Dates: start: 20130728, end: 20131017

REACTIONS (13)
  - Skin odour abnormal [Unknown]
  - Weight decreased [Unknown]
  - Diarrhoea [Unknown]
  - Skin odour abnormal [Unknown]
  - Weight decreased [Unknown]
  - Skin odour abnormal [Unknown]
  - Heart rate increased [Unknown]
  - Blood pressure increased [Unknown]
  - Diarrhoea [Unknown]
  - Cardiac flutter [Unknown]
  - Injection site rash [Unknown]
  - Pruritus [Unknown]
  - Injection site reaction [Unknown]
